FAERS Safety Report 26182210 (Version 1)
Quarter: 2025Q4

REPORT INFORMATION
  Report Type: Spontaneous
  Country: US (occurrence: US)
  Receive Date: 20251221
  Receipt Date: 20251221
  Transmission Date: 20260118
  Serious: Yes (Hospitalization, Other)
  Sender: HETERO
  Company Number: US-AMAROX PHARMA-ASP2025US07755

PATIENT
  Age: 40 Year
  Sex: Female

DRUGS (1)
  1. OLANZAPINE [Suspect]
     Active Substance: OLANZAPINE
     Indication: Product used for unknown indication
     Dosage: UNK (AT BEDTIME, INITIATED FOUR MONTHS PRIOR  )
     Route: 065

REACTIONS (3)
  - Colitis ischaemic [Recovered/Resolved]
  - Gastrointestinal necrosis [Recovered/Resolved]
  - Large intestinal ulcer [Recovered/Resolved]
